FAERS Safety Report 5533730-9 (Version None)
Quarter: 2007Q4

REPORT INFORMATION
  Report Type: 
  Country: None (occurrence: None)
  Receive Date: 20071204
  Receipt Date: 20071107
  Transmission Date: 20080405
  Serious: No
  Sender: FDA-Public Use
  Company Number: US-BOEHRINGER INGELHEIM PHARMACEUTICALS, INC.-2007-BP-04616BP

PATIENT
  Age: 80 Year
  Sex: Female

DRUGS (3)
  1. CLONIDINE HCL [Suspect]
     Indication: HYPERTENSION
     Route: 048
     Dates: start: 20020101
  2. ATENOLOL [Suspect]
     Indication: HYPERTENSION
     Route: 048
  3. NORVASC [Suspect]
     Indication: HYPERTENSION
     Route: 048

REACTIONS (7)
  - ARTHRALGIA [None]
  - BLOOD PRESSURE INADEQUATELY CONTROLLED [None]
  - BRADYCARDIA [None]
  - CHEST PAIN [None]
  - HEART RATE DECREASED [None]
  - HYPERTENSION [None]
  - URTICARIA [None]
